FAERS Safety Report 7759566-6 (Version None)
Quarter: 2011Q3

REPORT INFORMATION
  Report Type: 
  Country: None (occurrence: None)
  Receive Date: 20110919
  Receipt Date: 20110908
  Transmission Date: 20111222
  Serious: Yes (Hospitalization)
  Sender: FDA-Public Use
  Company Number: US-BAXTER-2011BH028117

PATIENT
  Age: 84 Year
  Sex: Female

DRUGS (1)
  1. DIANEAL [Suspect]
     Indication: PERITONEAL DIALYSIS
     Route: 033

REACTIONS (7)
  - ASTHENIA [None]
  - SYNCOPE [None]
  - DIZZINESS [None]
  - CLOSTRIDIAL INFECTION [None]
  - PERIPHERAL ISCHAEMIA [None]
  - THROMBOSIS [None]
  - HYPOTENSION [None]
